FAERS Safety Report 11422889 (Version 1)
Quarter: 2015Q3

REPORT INFORMATION
  Report Type: Spontaneous
  Country: US (occurrence: None)
  Receive Date: 20150826
  Receipt Date: 20150826
  Transmission Date: 20151125
  Serious: Yes (Hospitalization)
  Sender: FDA-Public Use
  Company Number: None

PATIENT
  Age: 23 Year
  Sex: Female
  Weight: 68.04 kg

DRUGS (7)
  1. OXYCODONE [Suspect]
     Active Substance: OXYCODONE
     Indication: CANCER PAIN
     Dosage: 1-2 TABLETS EVERY 4 HOURS
     Route: 048
     Dates: start: 20150123, end: 20150825
  2. TYLENOL [Concomitant]
     Active Substance: ACETAMINOPHEN
  3. ZOFRAN [Concomitant]
     Active Substance: ONDANSETRON HYDROCHLORIDE
  4. XANAX [Concomitant]
     Active Substance: ALPRAZOLAM
  5. OXYCODONE [Suspect]
     Active Substance: OXYCODONE
     Indication: PROCEDURAL PAIN
     Dosage: 1-2 TABLETS EVERY 4 HOURS
     Route: 048
     Dates: start: 20150123, end: 20150825
  6. ESTRADIOL. [Concomitant]
     Active Substance: ESTRADIOL
  7. OXYCODONE [Concomitant]
     Active Substance: OXYCODONE

REACTIONS (7)
  - Palpitations [None]
  - Migraine [None]
  - Vomiting [None]
  - Anxiety [None]
  - Head discomfort [None]
  - Negative thoughts [None]
  - Nausea [None]

NARRATIVE: CASE EVENT DATE: 20150825
